FAERS Safety Report 22100703 (Version 1)
Quarter: 2023Q1

REPORT INFORMATION
  Report Type: Other
  Country: CZ (occurrence: CZ)
  Receive Date: 20230316
  Receipt Date: 20230316
  Transmission Date: 20230418
  Serious: Yes (Hospitalization, Other)
  Sender: FDA-Public Use
  Company Number: CZ-Bion-011328

PATIENT
  Age: 62 Year
  Sex: Male

DRUGS (3)
  1. PARICALCITOL [Suspect]
     Active Substance: PARICALCITOL
     Indication: Hyperparathyroidism secondary
  2. CALCIUM [Concomitant]
     Active Substance: CALCIUM
     Indication: Hyperparathyroidism secondary
  3. WARFARIN [Concomitant]
     Active Substance: WARFARIN
     Indication: Deep vein thrombosis

REACTIONS (1)
  - Calciphylaxis [Recovered/Resolved]
